FAERS Safety Report 5935014-3 (Version None)
Quarter: 2008Q4

REPORT INFORMATION
  Report Type: 
  Country: None (occurrence: None)
  Receive Date: 20081014
  Receipt Date: 20080507
  Transmission Date: 20090506
  Serious: Yes (Hospitalization)
  Sender: FDA-Public Use
  Company Number: 2008-0269

PATIENT
  Age: 16 Year
  Sex: Female

DRUGS (1)
  1. SPECTRACEF [Suspect]
     Indication: ACUTE SINUSITIS
     Dosage: 400 MG BID, ORAL
     Route: 048

REACTIONS (1)
  - ANAPHYLACTIC REACTION [None]
